FAERS Safety Report 9324528 (Version 1)
Quarter: 2013Q2

REPORT INFORMATION
  Report Type: Report from Study
  Country: JP (occurrence: JP)
  Receive Date: 20130603
  Receipt Date: 20130603
  Transmission Date: 20140414
  Serious: Yes (Death)
  Sender: FDA-Public Use
  Company Number: JP-EISAI-201301200

PATIENT
  Age: 72 Year
  Sex: Female
  Weight: 32 kg

DRUGS (7)
  1. LUNESTA [Suspect]
     Indication: INSOMNIA RELATED TO ANOTHER MENTAL CONDITION
     Route: 048
     Dates: start: 20130218, end: 20130324
  2. ROZEREM [Concomitant]
     Indication: DEMENTIA WITH LEWY BODIES
     Route: 048
  3. ARICEPT [Concomitant]
     Indication: DEMENTIA WITH LEWY BODIES
     Route: 048
     Dates: end: 20130323
  4. MENESIT [Concomitant]
     Indication: DEMENTIA WITH LEWY BODIES
     Route: 048
     Dates: end: 20130323
  5. DOPS [Concomitant]
     Indication: DEMENTIA WITH LEWY BODIES
     Route: 048
     Dates: end: 20130323
  6. FP [Concomitant]
     Indication: DEMENTIA WITH LEWY BODIES
     Route: 048
     Dates: end: 20130323
  7. ALEVIATIN /00017401/ [Concomitant]
     Indication: EPILEPSY
     Route: 048
     Dates: end: 20130323

REACTIONS (1)
  - Pneumonia aspiration [Fatal]
